FAERS Safety Report 13596077 (Version 1)
Quarter: 2017Q2

REPORT INFORMATION
  Report Type: Spontaneous
  Country: US (occurrence: US)
  Receive Date: 20170531
  Receipt Date: 20170531
  Transmission Date: 20170830
  Serious: No
  Sender: FDA-Public Use
  Company Number: US-JNJFOC-20170313400

PATIENT
  Age: 79 Year
  Sex: Female
  Weight: 72.12 kg

DRUGS (2)
  1. TYLENOL 8HR [Suspect]
     Active Substance: ACETAMINOPHEN
     Indication: PRODUCT USED FOR UNKNOWN INDICATION
     Dosage: 1 AT NIGHT AND 1 IN THE MORNING
     Route: 048
     Dates: start: 20170306
  2. TYLENOL 8HR [Suspect]
     Active Substance: ACETAMINOPHEN
     Route: 048

REACTIONS (6)
  - Abdominal pain upper [Recovering/Resolving]
  - Inappropriate schedule of drug administration [Recovering/Resolving]
  - Nausea [Recovering/Resolving]
  - Incorrect dose administered [Recovering/Resolving]
  - Blood pressure increased [Recovering/Resolving]
  - Headache [Recovering/Resolving]

NARRATIVE: CASE EVENT DATE: 20170306
